FAERS Safety Report 23858646 (Version 1)
Quarter: 2024Q2

REPORT INFORMATION
  Report Type: Spontaneous
  Country: US (occurrence: US)
  Receive Date: 20240515
  Receipt Date: 20240515
  Transmission Date: 20240716
  Serious: Yes (Other)
  Sender: FDA-Public Use
  Company Number: US-SA-SAC20240513001136

PATIENT
  Age: 48 Year
  Sex: Male
  Weight: 84.3 kg

DRUGS (8)
  1. DUPIXENT [Suspect]
     Active Substance: DUPILUMAB
     Indication: Neurodermatitis
     Dosage: 300 MG, QOW
     Route: 058
     Dates: start: 202305
  2. DUPIXENT [Suspect]
     Active Substance: DUPILUMAB
     Dosage: 100 UNK
     Dates: start: 2023
  3. SILVADENE [Concomitant]
     Active Substance: SILVER SULFADIAZINE
  4. TRIAMCINOLONE ACETONIDE [Concomitant]
     Active Substance: TRIAMCINOLONE ACETONIDE
  5. HYDROXYZINE HYDROCHLORIDE [Concomitant]
     Active Substance: HYDROXYZINE HYDROCHLORIDE
  6. NORTRIPTYLINE HYDROCHLORIDE [Concomitant]
     Active Substance: NORTRIPTYLINE HYDROCHLORIDE
  7. DIAZEPAM [Concomitant]
     Active Substance: DIAZEPAM
  8. FLUOXETINE HYDROCHLORIDE [Concomitant]
     Active Substance: FLUOXETINE HYDROCHLORIDE

REACTIONS (17)
  - Spinal fracture [Unknown]
  - Abdominal discomfort [Unknown]
  - Asthenia [Unknown]
  - Rash macular [Unknown]
  - Swelling [Unknown]
  - Visual impairment [Unknown]
  - Arthritis [Not Recovered/Not Resolved]
  - Nausea [Unknown]
  - Illness [Unknown]
  - Feeling abnormal [Unknown]
  - Peripheral swelling [Unknown]
  - Myalgia [Unknown]
  - Pruritus [Not Recovered/Not Resolved]
  - Skin burning sensation [Recovering/Resolving]
  - Injection site bruising [Unknown]
  - Injection site pain [Unknown]
  - Off label use [Unknown]

NARRATIVE: CASE EVENT DATE: 20230101
